FAERS Safety Report 16540172 (Version 1)
Quarter: 2019Q3

REPORT INFORMATION
  Report Type: Spontaneous
  Country: US (occurrence: US)
  Receive Date: 20190706
  Receipt Date: 20190706
  Transmission Date: 20191004
  Serious: Yes (Other)
  Sender: FDA-Public Use
  Company Number: None

PATIENT
  Age: 24 Year
  Sex: Female
  Weight: 69.75 kg

DRUGS (9)
  1. ESTARYLLA [Suspect]
     Active Substance: ETHINYL ESTRADIOL\NORGESTIMATE
     Indication: CONTRACEPTION
     Dosage: ?          QUANTITY:1 TABLET(S);?
     Route: 048
     Dates: start: 20180601, end: 20190620
  2. PRAZOSIN. [Concomitant]
     Active Substance: PRAZOSIN
  3. HYDROXYZINE [Concomitant]
     Active Substance: HYDROXYZINE HYDROCHLORIDE
  4. FLUOXETINE [Concomitant]
     Active Substance: FLUOXETINE HYDROCHLORIDE
  5. XYZAL (LEVOCETIRIZINE) [Concomitant]
  6. PEPCID [Concomitant]
     Active Substance: FAMOTIDINE
  7. EPINEPHRINE. [Concomitant]
     Active Substance: EPINEPHRINE
  8. BENADRYL [Concomitant]
     Active Substance: DIPHENHYDRAMINE HYDROCHLORIDE
  9. OXTELLAR XR [Concomitant]
     Active Substance: OXCARBAZEPINE

REACTIONS (5)
  - Abdominal pain [None]
  - Constipation [None]
  - Faecaloma [None]
  - Product use complaint [None]
  - Infrequent bowel movements [None]

NARRATIVE: CASE EVENT DATE: 20190321
